FAERS Safety Report 7647241-8 (Version None)
Quarter: 2011Q3

REPORT INFORMATION
  Report Type: 
  Country: None (occurrence: None)
  Receive Date: 20110801
  Receipt Date: 20090611
  Transmission Date: 20111222
  Serious: Yes (Other)
  Sender: FDA-Public Use
  Company Number: US-BAYER-200920202NA

PATIENT
  Age: 64 Year
  Sex: Female

DRUGS (7)
  1. OPTIMARK [Suspect]
     Indication: NUCLEAR MAGNETIC RESONANCE IMAGING
  2. GADOLINIUM IN UNSPECIFIED DRUG [Suspect]
     Indication: NUCLEAR MAGNETIC RESONANCE IMAGING BRAIN
     Dosage: UNK UNK, ONCE
     Dates: start: 19991013, end: 19991013
  3. MULTIHANCE [Suspect]
     Indication: NUCLEAR MAGNETIC RESONANCE IMAGING
  4. PROHANCE [Suspect]
     Indication: NUCLEAR MAGNETIC RESONANCE IMAGING
  5. LOTREL [Concomitant]
  6. MAGNEVIST [Suspect]
     Indication: NUCLEAR MAGNETIC RESONANCE IMAGING
  7. OMNISCAN [Suspect]
     Indication: NUCLEAR MAGNETIC RESONANCE IMAGING

REACTIONS (9)
  - PAIN [None]
  - ANXIETY [None]
  - SKIN DISCOLOURATION [None]
  - SKIN FIBROSIS [None]
  - MOBILITY DECREASED [None]
  - EMOTIONAL DISTRESS [None]
  - SKIN LESION [None]
  - ANHEDONIA [None]
  - NEPHROGENIC SYSTEMIC FIBROSIS [None]
